FAERS Safety Report 8242768-2 (Version None)
Quarter: 2012Q1

REPORT INFORMATION
  Report Type: 
  Country: None (occurrence: None)
  Receive Date: 20120329
  Receipt Date: 20120321
  Transmission Date: 20120608
  Serious: Yes (Hospitalization, Other)
  Sender: FDA-Public Use
  Company Number: US-BAYER-2012-028071

PATIENT
  Sex: Female

DRUGS (2)
  1. YAZ [Suspect]
     Dosage: UNK
     Dates: start: 20030101
  2. YASMIN [Suspect]
     Dosage: UNK
     Dates: start: 20030101

REACTIONS (6)
  - PAIN [None]
  - PREGNANCY ON ORAL CONTRACEPTIVE [None]
  - INJURY [None]
  - EMOTIONAL DISTRESS [None]
  - PREMATURE BABY [None]
  - PULMONARY EMBOLISM [None]
